FAERS Safety Report 21557370 (Version 1)
Quarter: 2022Q4

REPORT INFORMATION
  Report Type: Report from Study
  Country: MX (occurrence: MX)
  Receive Date: 20221105
  Receipt Date: 20221105
  Transmission Date: 20230112
  Serious: Yes (Other)
  Sender: FDA-Public Use
  Company Number: MX-002147023-NVSC2022MX248418

PATIENT
  Sex: Female
  Weight: 60 kg

DRUGS (3)
  1. METFORMIN HYDROCHLORIDE\VILDAGLIPTIN [Suspect]
     Active Substance: METFORMIN HYDROCHLORIDE\VILDAGLIPTIN
     Indication: Diabetes mellitus
     Dosage: 1 DOSAGE FORM (50 /850 MG) (MORE THAN 10 YEARS AGO)
     Route: 048
  2. EXFORGE [Suspect]
     Active Substance: AMLODIPINE BESYLATE\VALSARTAN
     Indication: Hypertension
     Dosage: 1 DOSAGE FORM, QD (160 / 5 MG) (STARTED 10 YEARS AGO, STOPPED 5 YEARS AGO)
     Route: 048
  3. EXFORGE [Suspect]
     Active Substance: AMLODIPINE BESYLATE\VALSARTAN
     Dosage: 1 DOSAGE FORM, QD (160 / 10 MG) (5 YEARS AGO APPROXIMATELY)
     Route: 048

REACTIONS (9)
  - Choroidal effusion [Recovered/Resolved]
  - Dyspnoea [Unknown]
  - Blood glucagon increased [Not Recovered/Not Resolved]
  - Blood pressure increased [Unknown]
  - Blood glucose abnormal [Not Recovered/Not Resolved]
  - Ephelides [Not Recovered/Not Resolved]
  - Memory impairment [Unknown]
  - Anxiety [Unknown]
  - Tachycardia [Unknown]
